FAERS Safety Report 20808806 (Version 1)
Quarter: 2022Q2

REPORT INFORMATION
  Report Type: Spontaneous
  Country: US (occurrence: None)
  Receive Date: 20220509
  Receipt Date: 20220509
  Transmission Date: 20220720
  Serious: Yes (Death)
  Sender: FDA-Public Use
  Company Number: None

PATIENT
  Age: 67 Day
  Sex: Male
  Weight: 88.2 kg

DRUGS (3)
  1. LEVOFLOXACIN [Suspect]
     Active Substance: LEVOFLOXACIN
     Indication: Epididymitis
     Dosage: FREQUENCY : DAILY;?
     Route: 048
     Dates: start: 20220325, end: 20220409
  2. CALCIUM [Concomitant]
     Active Substance: CALCIUM
  3. IBUPROFEN [Concomitant]
     Active Substance: IBUPROFEN

REACTIONS (3)
  - Sunburn [None]
  - Feeling abnormal [None]
  - Myocardial infarction [None]

NARRATIVE: CASE EVENT DATE: 20220412
